FAERS Safety Report 10435053 (Version 1)
Quarter: 2014Q2

REPORT INFORMATION
  Report Type: Spontaneous
  Country: US (occurrence: None)
  Receive Date: 20140618
  Receipt Date: 20140618
  Transmission Date: 20141212
  Serious: Yes (Hospitalization)
  Sender: FDA-Public Use
  Company Number: 100401U

PATIENT
  Sex: Male
  Weight: 82.6 kg

DRUGS (1)
  1. LACOSAMIDE [Suspect]
     Indication: CONVULSION
     Dates: start: 201305

REACTIONS (3)
  - Fall [None]
  - Balance disorder [None]
  - Convulsion [None]
